FAERS Safety Report 6343294-8 (Version None)
Quarter: 2009Q3

REPORT INFORMATION
  Report Type: 
  Country: None (occurrence: None)
  Receive Date: 20090908
  Receipt Date: 20090827
  Transmission Date: 20100115
  Serious: Yes (Other)
  Sender: FDA-Public Use
  Company Number: PHHY2009CA35498

PATIENT
  Sex: Female

DRUGS (7)
  1. DIOVAN [Suspect]
     Indication: HYPERTENSION
     Dosage: 1 TABLET (40 MG) PER DAY
     Route: 048
     Dates: start: 20090430, end: 20090817
  2. ADALAT [Concomitant]
     Dosage: 1 TABLET (30 MG)/ DAY
  3. SIMVASTATIN [Concomitant]
     Indication: BLOOD CHOLESTEROL INCREASED
     Dosage: 1 TABLET(20 MG)/DAY
  4. ASPIRIN [Concomitant]
     Indication: POOR PERIPHERAL CIRCULATION
     Dosage: 325 MG
  5. LUTEINE [Concomitant]
     Dosage: 1 DF, BID
  6. ACTONEL [Concomitant]
     Dosage: 1 TABLET PER WEEK
  7. CAL-500-D [Concomitant]
     Dosage: 1 DF, BID

REACTIONS (9)
  - ASTHENIA [None]
  - BLOOD POTASSIUM INCREASED [None]
  - DEHYDRATION [None]
  - DIARRHOEA [None]
  - DIZZINESS [None]
  - FAECAL INCONTINENCE [None]
  - FEELING ABNORMAL [None]
  - LOSS OF CONSCIOUSNESS [None]
  - WEIGHT DECREASED [None]
